FAERS Safety Report 6968285-5 (Version None)
Quarter: 2010Q3

REPORT INFORMATION
  Report Type: 
  Country: None (occurrence: None)
  Receive Date: 20100907
  Receipt Date: 20100827
  Transmission Date: 20110219
  Serious: Yes (Hospitalization)
  Sender: FDA-Public Use
  Company Number: BE-ROCHE-713599

PATIENT
  Sex: Male
  Weight: 62.5 kg

DRUGS (7)
  1. AVASTIN [Suspect]
     Route: 042
     Dates: start: 20090505, end: 20090714
  2. LEUCOVORIN CALCIUM [Suspect]
     Dosage: REPORTED AS FOLFIRI
     Route: 042
     Dates: start: 20090505, end: 20090714
  3. LEUCOVORIN CALCIUM [Suspect]
     Dosage: REPORTED AS FOLFIRI
     Route: 042
     Dates: start: 20090901
  4. FLUOROURACIL [Suspect]
     Dosage: REPORTED AS FOLFIRI
     Route: 042
     Dates: start: 20090505, end: 20090714
  5. FLUOROURACIL [Suspect]
     Dosage: REPORTED AS FOLFIRI
     Route: 042
     Dates: start: 20090901
  6. IRINOTECAN HCL [Suspect]
     Dosage: REPORTED AS FOLFIRI
     Route: 042
     Dates: start: 20090305, end: 20090714
  7. IRINOTECAN HCL [Suspect]
     Dosage: REPORTED AS FOLFIRI
     Route: 042
     Dates: start: 20090901

REACTIONS (3)
  - DEVICE DISLOCATION [None]
  - GASTROINTESTINAL PERFORATION [None]
  - SCROTAL PAIN [None]
